FAERS Safety Report 5328106-3 (Version None)
Quarter: 2007Q2

REPORT INFORMATION
  Report Type: 
  Country: None (occurrence: None)
  Receive Date: 20070514
  Receipt Date: 20070507
  Transmission Date: 20071010
  Serious: Yes (Other)
  Sender: FDA-Public Use
  Company Number: S07-USA-01528-01

PATIENT
  Age: 67 Year
  Sex: Female

DRUGS (10)
  1. NAMENDA [Suspect]
     Indication: MEMORY IMPAIRMENT
     Dates: start: 20070101
  2. COUMADIN [Suspect]
     Indication: ATRIAL FIBRILLATION
     Dosage: 5 MG PO
     Route: 048
     Dates: end: 20070405
  3. COUMADIN [Suspect]
     Indication: ATRIAL FIBRILLATION
     Dosage: 2.5 MG QW PO
     Route: 048
     Dates: end: 20070405
  4. COUMADIN [Suspect]
     Indication: ATRIAL FIBRILLATION
     Dosage: 5 MG PO
     Route: 048
     Dates: start: 20070409
  5. COUMADIN [Suspect]
     Indication: ATRIAL FIBRILLATION
     Dosage: 2.5 MG QW PO
     Route: 048
     Dates: start: 20070409
  6. NABUMETONE [Concomitant]
  7. ALLEGRA [Concomitant]
  8. ARICEPT [Concomitant]
  9. EFFEXOR [Concomitant]
  10. NEXIUM [Concomitant]

REACTIONS (2)
  - DRUG INTERACTION [None]
  - INTERNATIONAL NORMALISED RATIO INCREASED [None]
